FAERS Safety Report 12768606 (Version 1)
Quarter: 2016Q3

REPORT INFORMATION
  Report Type: Report from Study
  Country: US (occurrence: US)
  Receive Date: 20160921
  Receipt Date: 20160921
  Transmission Date: 20161109
  Serious: Yes (Other)
  Sender: FDA-Public Use
  Company Number: US-AMGEN-USASL2016124630

PATIENT
  Age: 64 Year
  Sex: Female
  Weight: 69.8 kg

DRUGS (1)
  1. PROLIA [Suspect]
     Active Substance: DENOSUMAB
     Indication: PRODUCT USED FOR UNKNOWN INDICATION
     Dosage: UNK
     Route: 065

REACTIONS (9)
  - Nodule [Unknown]
  - Osteopenia [Unknown]
  - Musculoskeletal pain [Unknown]
  - Hypertension [Unknown]
  - Off label use [Unknown]
  - Spinal compression fracture [Unknown]
  - Hysterectomy [Unknown]
  - Scoliosis [Unknown]
  - Joint range of motion decreased [Unknown]
